FAERS Safety Report 7620916 (Version 17)
Quarter: 2014Q3

REPORT INFORMATION
  Report Type: Report from Study
  Country: CA (occurrence: CA)
  Receive Date: 20101007
  Receipt Date: 20140819
  Transmission Date: 20150326
  Serious: Yes (Hospitalization, Other)
  Sender: FDA-Public Use
  Company Number: PHHY2010CA64349

PATIENT
  Age: 53 Year
  Sex: Male

DRUGS (8)
  1. SANDOSTATIN LAR DEPOT [Suspect]
     Active Substance: OCTREOTIDE ACETATE
     Dosage: 40 MG, EVERY 4 WEEKS
     Route: 030
  2. SANDOSTATIN LAR DEPOT [Suspect]
     Active Substance: OCTREOTIDE ACETATE
     Dosage: 40 MG, ONCE A MONTH
     Route: 030
  3. DIAMICRON [Concomitant]
     Active Substance: GLICLAZIDE
     Dosage: 30 MG, QD
  4. SANDOSTATIN LAR DEPOT [Suspect]
     Active Substance: OCTREOTIDE ACETATE
     Indication: OFF LABEL USE
     Dosage: 40 MG, QMO
  5. SANDOSTATIN LAR DEPOT [Suspect]
     Active Substance: OCTREOTIDE ACETATE
     Dosage: 40 MG, EVERY FOUR WEEKS
     Route: 030
  6. LANTUS [Concomitant]
     Active Substance: INSULIN GLARGINE
     Dosage: 32 U, QD
  7. SANDOSTATIN LAR DEPOT [Suspect]
     Active Substance: OCTREOTIDE ACETATE
     Indication: CROHN^S DISEASE
     Dosage: 40 MG EVERY 4 WEEKS
     Route: 030
     Dates: start: 20100830
  8. HUMALOG [Concomitant]
     Active Substance: INSULIN LISPRO
     Dosage: 10-16 U, UKN

REACTIONS (12)
  - Coma [Recovered/Resolved]
  - Malaise [Unknown]
  - Wound [Unknown]
  - Purulence [Unknown]
  - Clostridium difficile infection [Recovered/Resolved]
  - Confusional state [Unknown]
  - Loss of consciousness [Unknown]
  - Sepsis [Unknown]
  - Thrombophlebitis [Unknown]
  - Stoma site infection [Unknown]
  - Infection [Unknown]
  - Blood glucose increased [Unknown]

NARRATIVE: CASE EVENT DATE: 20131114
